FAERS Safety Report 7689546-0 (Version None)
Quarter: 2011Q3

REPORT INFORMATION
  Report Type: 
  Country: None (occurrence: None)
  Receive Date: 20110811
  Receipt Date: 20110802
  Transmission Date: 20111222
  Serious: Yes (Hospitalization, Other)
  Sender: FDA-Public Use
  Company Number: 2011000908

PATIENT
  Age: 77 Year
  Sex: Female
  Weight: 63 kg

DRUGS (22)
  1. ALBUTEROL [Concomitant]
  2. TARCEVA [Suspect]
     Indication: LUNG CARCINOMA CELL TYPE UNSPECIFIED STAGE 0
     Dosage: 150 MG, UID/QD, ORAL
     Route: 048
     Dates: start: 20110203
  3. ADVAIR HFA [Concomitant]
  4. MULTIVITAMIN (VITAMIN NOS) [Concomitant]
  5. RANITIDINE [Concomitant]
  6. CALCIUM PLUS D3 (COLECALCIFEROL) [Concomitant]
  7. PEPCID [Concomitant]
  8. SINGULAIR [Concomitant]
  9. LOPRESSOR [Concomitant]
  10. LORAZEPAM [Concomitant]
  11. METOPROLOL TARTRATE [Concomitant]
  12. SPIRIVA [Concomitant]
  13. ZEGERID (OMEPRAZOLE) [Concomitant]
  14. FELODIPINE [Concomitant]
  15. PANTOPRAZOLE [Concomitant]
  16. REGLAN [Concomitant]
  17. WARFARIN SODIUM [Concomitant]
  18. COUMADIN [Concomitant]
  19. DIGOXIN [Concomitant]
  20. LEXAPRO [Concomitant]
  21. BONIVA [Concomitant]
  22. TARCEVA [Suspect]

REACTIONS (21)
  - INTERNATIONAL NORMALISED RATIO INCREASED [None]
  - CANDIDIASIS [None]
  - DECREASED APPETITE [None]
  - ANAEMIA [None]
  - OEDEMA PERIPHERAL [None]
  - DIZZINESS POSTURAL [None]
  - CHRONIC OBSTRUCTIVE PULMONARY DISEASE [None]
  - ATRIAL FIBRILLATION [None]
  - COLON ADENOMA [None]
  - HYPONATRAEMIA [None]
  - EYE IRRITATION [None]
  - RASH [None]
  - CAROTID BRUIT [None]
  - FEMORAL BRUIT [None]
  - WEIGHT DECREASED [None]
  - PNEUMONIA [None]
  - EYE PRURITUS [None]
  - INTESTINAL MASS [None]
  - URINARY TRACT INFECTION [None]
  - CONDITION AGGRAVATED [None]
  - DRY EYE [None]
